FAERS Safety Report 5492678-9 (Version None)
Quarter: 2007Q4

REPORT INFORMATION
  Report Type: 
  Country: None (occurrence: None)
  Receive Date: 20071022
  Receipt Date: 20071010
  Transmission Date: 20080405
  Serious: Yes (Other)
  Sender: FDA-Public Use
  Company Number: JP-PFIZER INC-2007087405

PATIENT
  Age: 68 Year
  Sex: Female

DRUGS (3)
  1. SOLANAX [Suspect]
     Route: 048
  2. LORAMET [Concomitant]
     Route: 048
  3. MUCOSTA [Concomitant]
     Route: 048

REACTIONS (1)
  - VISUAL ACUITY REDUCED [None]
